FAERS Safety Report 26027694 (Version 1)
Quarter: 2025Q4

REPORT INFORMATION
  Report Type: Report from Study
  Country: US (occurrence: US)
  Receive Date: 20251111
  Receipt Date: 20251111
  Transmission Date: 20260118
  Serious: Yes (Other)
  Sender: ALEXION PHARMACEUTICALS
  Company Number: US-ASTRAZENECA-202511NAM005409US

PATIENT
  Age: 84 Year
  Sex: Female

DRUGS (1)
  1. STRENSIQ [Suspect]
     Active Substance: ASFOTASE ALFA
     Indication: Phosphorus metabolism disorder
     Dosage: 2 MG/KG 3 TIMES PER WEEK AS DIRECTED. ROTATE INJECTION SITES
     Route: 065

REACTIONS (2)
  - Retinal detachment [Unknown]
  - Injection site rash [Unknown]
